FAERS Safety Report 7585833-5 (Version None)
Quarter: 2011Q2

REPORT INFORMATION
  Report Type: 
  Country: None (occurrence: None)
  Receive Date: 20110629
  Receipt Date: 20110629
  Transmission Date: 20111010
  Serious: Yes (Death)
  Sender: FDA-Public Use
  Company Number: None

PATIENT
  Age: 56 Year
  Sex: Female

DRUGS (8)
  1. VENLAFAXINE [Concomitant]
  2. REVLIMID [Suspect]
     Indication: CHRONIC LYMPHOCYTIC LEUKAEMIA
     Dosage: REVLIMID 5 MG DAILY ORALLY
     Route: 048
     Dates: start: 20110101, end: 20110201
  3. SPIRONOLACTONE [Concomitant]
  4. LORAZEPAM [Concomitant]
  5. ACYCLOVIR [Concomitant]
  6. HYDROCCDONE/ APAP, [Concomitant]
  7. ALBUTEROL SULFATE AUTOHALER [Concomitant]
  8. IPRATROPIUM BROMIDE [Concomitant]

REACTIONS (1)
  - ASCITES [None]
